FAERS Safety Report 8280788-2 (Version None)
Quarter: 2012Q2

REPORT INFORMATION
  Report Type: 
  Country: None (occurrence: None)
  Receive Date: 20120412
  Receipt Date: 20120404
  Transmission Date: 20120825
  Serious: Yes (Other)
  Sender: FDA-Public Use
  Company Number: US-ABBOTT-12P-163-0914051-00

PATIENT
  Age: 23 Year
  Sex: Male

DRUGS (1)
  1. BIAXIN [Suspect]
     Indication: BRONCHITIS

REACTIONS (11)
  - THERAPEUTIC RESPONSE UNEXPECTED [None]
  - TOXICITY TO VARIOUS AGENTS [None]
  - PARALYSIS [None]
  - MANIA [None]
  - HALLUCINATION [None]
  - AGGRESSION [None]
  - INSOMNIA [None]
  - ABNORMAL BEHAVIOUR [None]
  - ROAD TRAFFIC ACCIDENT [None]
  - CHEMICAL INJURY [None]
  - PSYCHOTIC DISORDER [None]
